FAERS Safety Report 13517183 (Version 1)
Quarter: 2017Q2

REPORT INFORMATION
  Report Type: Spontaneous
  Country: US (occurrence: US)
  Receive Date: 20170505
  Receipt Date: 20170505
  Transmission Date: 20170830
  Serious: Yes (Hospitalization)
  Sender: FDA-Public Use
  Company Number: None

PATIENT
  Age: 83 Year
  Sex: Female
  Weight: 49.8 kg

DRUGS (14)
  1. COREG [Concomitant]
     Active Substance: CARVEDILOL
  2. KLONOPIN [Concomitant]
     Active Substance: CLONAZEPAM
  3. FE [Concomitant]
     Active Substance: IRON
  4. APAP [Concomitant]
     Active Substance: ACETAMINOPHEN
  5. WARFARIN [Concomitant]
     Active Substance: WARFARIN
  6. DIGOXIN. [Suspect]
     Active Substance: DIGOXIN
     Indication: ATRIAL FIBRILLATION
     Route: 048
  7. RYTHMOL [Concomitant]
     Active Substance: PROPAFENONE HYDROCHLORIDE
  8. FOLTX ORAL [Concomitant]
  9. ARICEPT [Concomitant]
     Active Substance: DONEPEZIL HYDROCHLORIDE
  10. NORCO [Concomitant]
     Active Substance: ACETAMINOPHEN\HYDROCODONE BITARTRATE
  11. ATIVAN [Concomitant]
     Active Substance: LORAZEPAM
  12. LIPITOR [Concomitant]
     Active Substance: ATORVASTATIN CALCIUM
  13. ECOTRIN [Concomitant]
     Active Substance: ASPIRIN
  14. TUMS [Concomitant]
     Active Substance: CALCIUM CARBONATE

REACTIONS (11)
  - Syncope [None]
  - Seizure [None]
  - Dehydration [None]
  - Bradycardia [None]
  - Urinary tract infection [None]
  - Encephalopathy [None]
  - Toxicity to various agents [None]
  - Acute kidney injury [None]
  - Cerebrovascular accident [None]
  - Dementia [None]
  - Atrioventricular block complete [None]

NARRATIVE: CASE EVENT DATE: 20170103
